FAERS Safety Report 11314612 (Version 1)
Quarter: 2015Q3

REPORT INFORMATION
  Report Type: Report from Study
  Country: DE (occurrence: DE)
  Receive Date: 20150727
  Receipt Date: 20150727
  Transmission Date: 20151125
  Serious: Yes (Death, Hospitalization, Other)
  Sender: FDA-Public Use
  Company Number: DE-AMGEN-2011-0192

PATIENT
  Age: 61 Year
  Sex: Male
  Weight: 108 kg

DRUGS (29)
  1. BELOC ZOK MITE [Concomitant]
     Active Substance: METOPROLOL SUCCINATE
     Route: 048
     Dates: start: 20110708
  2. KALINOR                            /00031402/ [Concomitant]
     Active Substance: POTASSIUM CITRATE
     Indication: HYPOKALAEMIA
     Dosage: UNK
     Dates: start: 20110623, end: 20110709
  3. OMEP                               /00661201/ [Concomitant]
     Active Substance: OMEPRAZOLE
     Indication: DYSPEPSIA
     Dosage: 20 MG, QD
     Route: 048
     Dates: start: 20110605
  4. SPIRONOLACTON [Concomitant]
     Active Substance: SPIRONOLACTONE
     Indication: HYPOKALAEMIA
     Dosage: 50 MG, QD
     Route: 048
     Dates: start: 20110614
  5. ZOPICLON STADA [Concomitant]
     Indication: INSOMNIA
     Route: 048
  6. GLIBENCLAMIDE [Concomitant]
     Active Substance: GLYBURIDE
     Indication: DIABETES MELLITUS
     Route: 048
     Dates: start: 20110623
  7. FUROSEMID                          /00032601/ [Concomitant]
     Active Substance: FUROSEMIDE
     Indication: PROPHYLAXIS
  8. CARFILZOMIB [Suspect]
     Active Substance: CARFILZOMIB
     Indication: PLASMA CELL MYELOMA
     Dosage: 27 MG/M2, PER CHEMO REGIM
     Route: 042
     Dates: start: 20110606, end: 20110719
  9. ALLOPURINOL. [Concomitant]
     Active Substance: ALLOPURINOL
     Indication: HYPERURICAEMIA
     Route: 048
     Dates: start: 2005
  10. BELOC ZOK MITE [Concomitant]
     Active Substance: METOPROLOL SUCCINATE
     Indication: TACHYCARDIA
  11. ZOMETA [Concomitant]
     Active Substance: ZOLEDRONIC ACID
     Indication: PROPHYLAXIS
     Dosage: 4 MG, Q4WK
     Route: 042
     Dates: start: 20050629
  12. MAGNESIUM [Concomitant]
     Active Substance: MAGNESIUM
     Indication: HYPOMAGNESAEMIA
     Dosage: 300 MG, QD
     Route: 048
     Dates: start: 20110621, end: 20110623
  13. FENTANYL. [Concomitant]
     Active Substance: FENTANYL
     Indication: BACK PAIN
     Dosage: 200 MUG, Q2H
     Route: 062
     Dates: start: 20110623
  14. FUROSEMID                          /00032601/ [Concomitant]
     Active Substance: FUROSEMIDE
     Indication: RENAL FAILURE
     Dosage: 20-40 MG, QD
     Route: 048
     Dates: start: 20110623, end: 20110708
  15. DIAZEPAM STADA [Concomitant]
     Indication: INSOMNIA
     Route: 048
  16. IBUFLAM                            /00109201/ [Concomitant]
     Indication: BACK PAIN
     Route: 048
     Dates: start: 2010
  17. VALTREX [Concomitant]
     Active Substance: VALACYCLOVIR HYDROCHLORIDE
     Indication: ANTIVIRAL PROPHYLAXIS
     Dosage: 500 MG, UNK
     Route: 048
     Dates: start: 20110605, end: 20110625
  18. CLARITHROMYCIN. [Concomitant]
     Active Substance: CLARITHROMYCIN
     Indication: INFECTION
     Dosage: 500 MG, QD
     Dates: start: 20110620, end: 20110621
  19. DEXAMETHASONE. [Suspect]
     Active Substance: DEXAMETHASONE
     Indication: PLASMA CELL MYELOMA
     Dosage: 40 MG, PER CHEMO REGIM
     Route: 065
     Dates: start: 20110606, end: 20110718
  20. ASPIRIN. [Concomitant]
     Active Substance: ASPIRIN
     Indication: ANTICOAGULANT THERAPY
     Route: 048
     Dates: start: 20110624, end: 20110624
  21. AREDIA [Concomitant]
     Active Substance: PAMIDRONATE DISODIUM
     Indication: PLASMA CELL MYELOMA
     Route: 042
     Dates: start: 20110711, end: 20110711
  22. BELOC ZOK MITE [Concomitant]
     Active Substance: METOPROLOL SUCCINATE
     Indication: HYPERTENSION
  23. KALINOR-BRAUSETABLETTEN [Concomitant]
     Active Substance: POTASSIUM CARBONATE\POTASSIUM CITRATE
     Indication: HYPOKALAEMIA
     Dosage: 40 MVAL, AS NECESSARY
     Route: 048
     Dates: start: 20110623
  24. TARGOCID [Concomitant]
     Active Substance: TEICOPLANIN
     Indication: UROSEPSIS
     Dosage: 400 MG, QD
     Route: 042
     Dates: start: 20110623, end: 20110708
  25. TAZOBACTAM [Concomitant]
     Active Substance: TAZOBACTAM
     Indication: UROSEPSIS
     Dosage: 4.5 MG, BID
     Route: 042
     Dates: start: 20110622, end: 20110708
  26. CEFTIBUTEN. [Concomitant]
     Active Substance: CEFTIBUTEN
     Indication: INFECTION
     Dosage: 200 MG, QD
     Route: 048
     Dates: start: 20110620, end: 20110621
  27. INVANZ [Concomitant]
     Active Substance: ERTAPENEM SODIUM
     Indication: UROSEPSIS
     Dosage: 1000 MG, QD
     Route: 042
     Dates: start: 20110622, end: 20110623
  28. LENALIDOMIDE [Suspect]
     Active Substance: LENALIDOMIDE
     Indication: PLASMA CELL MYELOMA
     Dosage: 25 MG, PER CHEMO REGIM
     Route: 048
     Dates: start: 20110606, end: 20110723
  29. PANTOZOL [Concomitant]
     Active Substance: PANTOPRAZOLE SODIUM
     Indication: PROPHYLAXIS
     Route: 048
     Dates: start: 20110626

REACTIONS (2)
  - Myocardial infarction [Recovered/Resolved with Sequelae]
  - Myocardial infarction [Fatal]

NARRATIVE: CASE EVENT DATE: 20110624
